FAERS Safety Report 9938112 (Version 1)
Quarter: 2014Q1

REPORT INFORMATION
  Report Type: Spontaneous
  Country: CA (occurrence: CA)
  Receive Date: 20140303
  Receipt Date: 20140303
  Transmission Date: 20141002
  Serious: Yes (Other)
  Sender: FDA-Public Use
  Company Number: CA-ACCORD-022128

PATIENT
  Age: 44 Year
  Sex: Female

DRUGS (2)
  1. ALLOPURINOL SODIUM [Suspect]
     Indication: PRODUCT USED FOR UNKNOWN INDICATION
  2. AZATHIOPRINE [Suspect]
     Indication: MYOPATHY
     Dosage: STARTED WITH 250 MG DAILY, DECREASED TO 50, FINALLY DOSE TITRATED TO 125 MG DAILY

REACTIONS (1)
  - Drug reaction with eosinophilia and systemic symptoms [Recovered/Resolved]
